FAERS Safety Report 8347528-X (Version None)
Quarter: 2012Q2

REPORT INFORMATION
  Report Type: 
  Country: None (occurrence: None)
  Receive Date: 20120509
  Receipt Date: 20120430
  Transmission Date: 20120825
  Serious: Yes (Congenital Anomaly)
  Sender: FDA-Public Use
  Company Number: DE-TEVA-335935GER

PATIENT

DRUGS (2)
  1. METHOTREXATE [Suspect]
     Route: 064
  2. FOLCUR [Concomitant]
     Route: 064

REACTIONS (2)
  - EXOMPHALOS [None]
  - CAUDAL REGRESSION SYNDROME [None]
